FAERS Safety Report 9363694 (Version 3)
Quarter: 2013Q3

REPORT INFORMATION
  Report Type: Spontaneous
  Country: US (occurrence: US)
  Receive Date: 20130624
  Receipt Date: 20130711
  Transmission Date: 20140515
  Serious: No
  Sender: FDA-Public Use
  Company Number: US-ASTRAZENECA-2013SE47701

PATIENT
  Age: 77 Year
  Sex: Female
  Weight: 52.2 kg

DRUGS (3)
  1. SYMBICORT PMDI [Suspect]
     Dosage: 160/4.5 MCG, 2 PUFFS, BID
     Route: 055
  2. MEDICATION FOR HIGH BLOOD PRESSURE [Concomitant]
     Indication: HYPERTENSION
  3. MEDICATION FOR THYROID [Concomitant]
     Indication: THYROID DISORDER

REACTIONS (1)
  - Choking [Recovered/Resolved]
